FAERS Safety Report 10568956 (Version 1)
Quarter: 2014Q4

REPORT INFORMATION
  Report Type: Spontaneous
  Country: JP (occurrence: JP)
  Receive Date: 20141106
  Receipt Date: 20141106
  Transmission Date: 20150529
  Serious: Yes (Hospitalization)
  Sender: FDA-Public Use
  Company Number: PHHY2014JP142064

PATIENT
  Age: 81 Year
  Sex: Female

DRUGS (1)
  1. HEPARIN [Suspect]
     Active Substance: HEPARIN SODIUM
     Indication: ATRIAL FIBRILLATION
     Dosage: 10000 U DAY -1
     Route: 065

REACTIONS (5)
  - Atrial thrombosis [Recovered/Resolved]
  - Platelet count decreased [Recovered/Resolved]
  - Fibrin D dimer increased [Unknown]
  - Heparin-induced thrombocytopenia [Recovered/Resolved]
  - Arterial occlusive disease [Unknown]
